FAERS Safety Report 5837710-5 (Version None)
Quarter: 2008Q3

REPORT INFORMATION
  Report Type: 
  Country: None (occurrence: None)
  Receive Date: 20080807
  Receipt Date: 20080805
  Transmission Date: 20090109
  Serious: Yes (Hospitalization)
  Sender: FDA-Public Use
  Company Number: GB-MERCK-0808GBR00025

PATIENT
  Age: 50 Year
  Sex: Male

DRUGS (2)
  1. INDOMETHACIN [Suspect]
     Indication: ARTHRITIS
     Route: 048
     Dates: end: 20080716
  2. FLOXACILLIN [Concomitant]
     Indication: CELLULITIS
     Route: 048
     Dates: start: 20080710, end: 20080701

REACTIONS (2)
  - FAECES DISCOLOURED [None]
  - UPPER GASTROINTESTINAL HAEMORRHAGE [None]
